FAERS Safety Report 5095988-2 (Version None)
Quarter: 2006Q3

REPORT INFORMATION
  Report Type: 
  Country: None (occurrence: None)
  Receive Date: 20060905
  Receipt Date: 20060620
  Transmission Date: 20061208
  Serious: Yes (Life-Threatening, Hospitalization, Other)
  Sender: FDA-Public Use
  Company Number: J200601539

PATIENT
  Age: 2 Year
  Sex: Male

DRUGS (24)
  1. AMOXICILLIN [Suspect]
     Indication: STREPTOCOCCAL INFECTION
     Route: 048
     Dates: start: 20060408, end: 20060412
  2. ASPIRIN [Suspect]
     Indication: KAWASAKI'S DISEASE
     Route: 048
     Dates: start: 20060327, end: 20060402
  3. CLARITHROMYCIN [Suspect]
     Indication: UPPER RESPIRATORY TRACT INFLAMMATION
     Dates: start: 20060331, end: 20060408
  4. FROBEN [Concomitant]
     Indication: KAWASAKI'S DISEASE
     Dates: start: 20060403, end: 20060412
  5. IMMUNE GLOBULIN INTRAVENOUS (HUMAN) [Concomitant]
     Indication: KAWASAKI'S DISEASE
     Dates: start: 20060301
  6. STRONGER NEO-MINOPHAGEN C [Concomitant]
     Dates: start: 20060410
  7. TRICLORYL [Concomitant]
  8. ANTEBATE [Concomitant]
  9. LOCOID [Concomitant]
  10. AZUNOL [Concomitant]
  11. EPINEPHRINE [Concomitant]
     Route: 055
  12. BETAMETHASONE SODIUM PHOSPHATE [Concomitant]
  13. PREDONINE [Concomitant]
  14. FLOMOX [Concomitant]
     Dates: start: 20060309, end: 20060312
  15. BIOFERMIN R [Concomitant]
     Dates: start: 20060309, end: 20060312
  16. PERIACTIN [Concomitant]
     Dates: start: 20060309, end: 20060312
  17. ASVERIN [Concomitant]
     Dates: start: 20060408, end: 20060412
  18. MUCODYNE [Concomitant]
     Dates: start: 20060331, end: 20060406
  19. KLARICID [Concomitant]
     Dates: start: 20060331, end: 20060406
  20. HOKUNALIN [Concomitant]
     Dates: start: 20060403, end: 20060407
  21. MUCODYNE [Concomitant]
     Dates: start: 20060408, end: 20060412
  22. MUCODYNE [Concomitant]
     Dates: start: 20060309, end: 20060312
  23. ASVERIN [Concomitant]
     Dates: start: 20060331, end: 20060406
  24. PERIACTIN [Concomitant]
     Dates: start: 20060403, end: 20060412

REACTIONS (9)
  - CENTRAL OBESITY [None]
  - CUSHINGOID [None]
  - DRUG HYPERSENSITIVITY [None]
  - EOSINOPHIL COUNT INCREASED [None]
  - HEPATIC FUNCTION ABNORMAL [None]
  - LARYNGEAL OEDEMA [None]
  - PYREXIA [None]
  - RASH [None]
  - STRIDOR [None]
